FAERS Safety Report 5354316-5 (Version None)
Quarter: 2007Q2

REPORT INFORMATION
  Report Type: 
  Country: None (occurrence: None)
  Receive Date: 20070521
  Receipt Date: 20070212
  Transmission Date: 20071010
  Serious: No
  Sender: FDA-Public Use
  Company Number: WAES 0702USA01696

PATIENT
  Age: 69 Year
  Sex: Female

DRUGS (9)
  1. JANUVIA [Suspect]
     Indication: DIABETES MELLITUS NON-INSULIN-DEPENDENT
     Dosage: 100 MG, DAILY, PO
     Route: 048
     Dates: start: 20070131, end: 20070207
  2. CITRACAL [Concomitant]
  3. LEVEMIR [Concomitant]
  4. LEVOXYL [Concomitant]
  5. ASPIRIN [Concomitant]
  6. ATENOLOL [Concomitant]
  7. CLONAZEPAM [Concomitant]
  8. CYANOCOBALAMIN [Concomitant]
  9. LISINOPRIL [Concomitant]

REACTIONS (4)
  - DRUG INEFFECTIVE [None]
  - FATIGUE [None]
  - INSOMNIA [None]
  - RESTLESSNESS [None]
